FAERS Safety Report 8588232 (Version 8)
Quarter: 2013Q2

REPORT INFORMATION
  Report Type: Report from Study
  Country: CA (occurrence: CA)
  Receive Date: 20120531
  Receipt Date: 20130422
  Transmission Date: 20140414
  Serious: No
  Sender: FDA-Public Use
  Company Number: PHHY2012CA001589

PATIENT
  Age: 53 Year
  Sex: Female

DRUGS (4)
  1. GILENYA [Suspect]
     Indication: RELAPSING-REMITTING MULTIPLE SCLEROSIS
     Dosage: 0.5 MG, DAILY
     Route: 048
     Dates: start: 20111221, end: 20130124
  2. IMOVANE [Concomitant]
  3. CELEXA [Concomitant]
  4. PRAMIPEXOLE [Concomitant]

REACTIONS (4)
  - Emphysema [Recovered/Resolved]
  - Cough [Recovered/Resolved]
  - Dyspnoea [Recovered/Resolved]
  - Dizziness [Recovered/Resolved]
